FAERS Safety Report 9994417 (Version 2)
Quarter: 2014Q2

REPORT INFORMATION
  Report Type: Spontaneous
  Country: US (occurrence: US)
  Receive Date: 20140311
  Receipt Date: 20140430
  Transmission Date: 20141212
  Serious: Yes (Hospitalization)
  Sender: FDA-Public Use
  Company Number: US-BIOGENIDEC-2014BI020494

PATIENT
  Age: 64 Year
  Sex: Male

DRUGS (14)
  1. AVONEX [Suspect]
     Indication: MULTIPLE SCLEROSIS
     Route: 030
  2. ACYCLOVIR [Concomitant]
  3. .ALLEGRA ALLERGY [Concomitant]
  4. ASTEPRO [Concomitant]
  5. EXFORGE [Concomitant]
  6. FLEXERIL [Concomitant]
  7. HYDROCHLOROTHIAZIDE [Concomitant]
  8. LIPITOR [Concomitant]
  9. MONTELUKAST SODIUM [Concomitant]
  10. NYSTATIN [Concomitant]
  11. TRAZODONE HCL [Concomitant]
  12. VESICARE [Concomitant]
  13. VIAGRA [Concomitant]
  14. XANAX [Concomitant]

REACTIONS (1)
  - Dural arteriovenous fistula [Not Recovered/Not Resolved]
